FAERS Safety Report 4844775-6 (Version None)
Quarter: 2005Q4

REPORT INFORMATION
  Report Type: 
  Country: None (occurrence: None)
  Receive Date: 20051201
  Receipt Date: 20051201
  Transmission Date: 20060501
  Serious: Yes (Hospitalization)
  Sender: FDA-Public Use
  Company Number: None

PATIENT
  Age: 78 Year
  Sex: Female
  Weight: 39.9165 kg

DRUGS (2)
  1. LETROZOLE [Suspect]
     Indication: BREAST CANCER
     Dosage: 2.5 MG ONCE DAILY PO
     Route: 048
  2. TARCEVA [Suspect]
     Indication: BREAST CANCER
     Dosage: 150 MG ONCE DAILY PO
     Route: 048

REACTIONS (2)
  - NAUSEA [None]
  - NUTRITIONAL SUPPORT [None]
